FAERS Safety Report 9080154 (Version 1)
Quarter: 2013Q1

REPORT INFORMATION
  Report Type: Report from Study
  Country: US (occurrence: US)
  Receive Date: 20130130
  Receipt Date: 20130130
  Transmission Date: 20140127
  Serious: No
  Sender: FDA-Public Use
  Company Number: US-ABBOTT-12P-163-0962809-00

PATIENT
  Age: 40 Year
  Sex: Female

DRUGS (5)
  1. HUMIRA 40 MG/0.8 ML PEN [Suspect]
     Indication: PSORIASIS
     Dates: start: 20120730
  2. 2 DIFFERENT EYE DROPS [Concomitant]
     Indication: IRIDOCORNEAL ENDOTHELIAL SYNDROME
     Route: 047
     Dates: start: 201203
  3. WELLBUTRIN [Concomitant]
     Indication: DEPRESSION
     Dates: start: 201204
  4. METFORMIN [Concomitant]
     Indication: DIABETES MELLITUS
     Dates: start: 201205
  5. LEVOTHYROXINE [Concomitant]
     Indication: THYROID DISORDER
     Dates: start: 201205

REACTIONS (1)
  - Paraesthesia [Not Recovered/Not Resolved]
